FAERS Safety Report 5885123-2 (Version None)
Quarter: 2008Q3

REPORT INFORMATION
  Report Type: 
  Country: None (occurrence: None)
  Receive Date: 20080916
  Receipt Date: 20080905
  Transmission Date: 20090109
  Serious: Yes (Hospitalization)
  Sender: FDA-Public Use
  Company Number: CA-MERCK-0809CAN00065

PATIENT
  Age: 37 Year
  Sex: Female

DRUGS (5)
  1. SINGULAIR [Suspect]
     Indication: ASTHMA
     Route: 048
     Dates: start: 20050101, end: 20080902
  2. SINGULAIR [Suspect]
     Route: 048
     Dates: start: 20080901
  3. FLUTICASONE PROPIONATE AND SALMETEROL XINAFOATE [Concomitant]
     Route: 065
  4. PREDNISONE [Concomitant]
     Route: 065
  5. CETIRIZINE HYDROCHLORIDE [Concomitant]
     Route: 065

REACTIONS (2)
  - ASTHMA [None]
  - DRUG EXPOSURE DURING PREGNANCY [None]
